FAERS Safety Report 23697883 (Version 3)
Quarter: 2024Q2

REPORT INFORMATION
  Report Type: Spontaneous
  Country: PH (occurrence: None)
  Receive Date: 20240402
  Receipt Date: 20240411
  Transmission Date: 20240715
  Serious: Yes (Death, Other)
  Sender: FDA-Public Use
  Company Number: 2024A077020

PATIENT
  Sex: Male
  Weight: 90 kg

DRUGS (1)
  1. DURVALUMAB [Suspect]
     Active Substance: DURVALUMAB
     Indication: Mixed hepatocellular cholangiocarcinoma
     Dosage: ONCE/SINGLE ADMINISTRATION
     Route: 042
     Dates: start: 20240229, end: 20240229

REACTIONS (4)
  - Acute respiratory distress syndrome [Fatal]
  - Septic shock [Fatal]
  - Pneumonia [Fatal]
  - Acute kidney injury [Unknown]

NARRATIVE: CASE EVENT DATE: 20240303
